FAERS Safety Report 6774369-7 (Version None)
Quarter: 2010Q2

REPORT INFORMATION
  Report Type: 
  Country: None (occurrence: None)
  Receive Date: 20100617
  Receipt Date: 20100520
  Transmission Date: 20101027
  Serious: Yes (Death)
  Sender: FDA-Public Use
  Company Number: US-ASTRAZENECA-2010SE23073

PATIENT
  Age: 66 Year
  Sex: Female

DRUGS (11)
  1. SEROQUEL [Suspect]
     Route: 048
  2. CYMBALTA [Concomitant]
     Route: 048
  3. GLIPIZIDE [Concomitant]
     Route: 048
  4. NORVASC [Concomitant]
     Route: 048
  5. ZOCOR [Concomitant]
     Route: 048
  6. LISINOPRIL [Concomitant]
     Route: 048
  7. KLONOPIN [Concomitant]
     Route: 048
  8. COUMADIN [Concomitant]
     Route: 048
  9. CATAPRES [Concomitant]
     Route: 048
  10. METFORMIN HCL [Concomitant]
     Route: 048
  11. HCTZ [Concomitant]
     Route: 048

REACTIONS (1)
  - DEATH [None]
